FAERS Safety Report 17186960 (Version 4)
Quarter: 2020Q4

REPORT INFORMATION
  Report Type: Report from Study
  Country: CO (occurrence: CO)
  Receive Date: 20191220
  Receipt Date: 20201026
  Transmission Date: 20210113
  Serious: Yes (Hospitalization, Other)
  Sender: FDA-Public Use
  Company Number: CO-AMGEN-COLSL2019210604

PATIENT
  Age: 74 Year
  Sex: Male

DRUGS (1)
  1. VECTIBIX [Suspect]
     Active Substance: PANITUMUMAB
     Indication: COLORECTAL CANCER METASTATIC
     Dosage: 350 MILLIGRAM, Q2WK
     Route: 042
     Dates: start: 20190724

REACTIONS (18)
  - Cystitis haemorrhagic [Not Recovered/Not Resolved]
  - Flushing [Not Recovered/Not Resolved]
  - Dry skin [Not Recovered/Not Resolved]
  - Vomiting [Recovered/Resolved]
  - Stoma obstruction [Recovered/Resolved]
  - Muscle spasms [Recovered/Resolved]
  - Dandruff [Not Recovered/Not Resolved]
  - Rash [Recovering/Resolving]
  - Chest pain [Recovered/Resolved]
  - Proctalgia [Not Recovered/Not Resolved]
  - Dizziness [Recovered/Resolved]
  - Diarrhoea [Recovered/Resolved]
  - Ocular hyperaemia [Not Recovered/Not Resolved]
  - Eye irritation [Not Recovered/Not Resolved]
  - Urinary tract infection [Recovered/Resolved]
  - Increased appetite [Not Recovered/Not Resolved]
  - Weight decreased [Recovered/Resolved]
  - Illness [Recovered/Resolved]

NARRATIVE: CASE EVENT DATE: 2019
